FAERS Safety Report 12773407 (Version 1)
Quarter: 2016Q3

REPORT INFORMATION
  Report Type: Report from Study
  Country: CZ (occurrence: CZ)
  Receive Date: 20160922
  Receipt Date: 20160922
  Transmission Date: 20161109
  Serious: Yes (Death, Hospitalization, Other)
  Sender: FDA-Public Use
  Company Number: CZ-TAKEDA-2014MPI003241

PATIENT
  Age: 70 Year
  Sex: Female
  Weight: 83 kg

DRUGS (9)
  1. METAMIZOLUM NATRICUM [Concomitant]
     Dosage: 500 MG, UNK
     Route: 048
     Dates: start: 20141109
  2. LORATADINUM [Concomitant]
     Dosage: 10 MG, QD
     Route: 048
     Dates: start: 20141023
  3. METOCLOPRAMIDI HYDROCHLORIDUM [Concomitant]
     Dosage: 10 MG, TID
     Route: 048
     Dates: start: 20140620
  4. FENTANYLUM                         /00174601/ [Concomitant]
     Dosage: 100 MG, UNK
     Route: 048
     Dates: start: 20141109
  5. ASPIRIN. [Concomitant]
     Active Substance: ASPIRIN
     Dosage: 100 MG, QD
     Route: 048
     Dates: start: 201208
  6. IXAZOMIB [Suspect]
     Active Substance: IXAZOMIB
     Indication: PLASMA CELL MYELOMA
     Dosage: 9 MG, UNK
     Route: 048
     Dates: start: 20140521, end: 20141119
  7. MELPHALAN [Suspect]
     Active Substance: MELPHALAN
     Indication: PLASMA CELL MYELOMA
     Dosage: 9 MG, UNK
     Route: 048
     Dates: start: 20140521, end: 20141115
  8. AMIODARONI HYDROCHLORIDUM [Concomitant]
     Dosage: 200 MG, QD
     Route: 048
     Dates: start: 2000
  9. PREDNISONE. [Suspect]
     Active Substance: PREDNISONE
     Indication: PLASMA CELL MYELOMA
     Dosage: 110 MG, UNK
     Route: 048
     Dates: start: 20140521, end: 20141115

REACTIONS (3)
  - Pneumonia [Fatal]
  - Asthenia [Unknown]
  - Plasma cell myeloma [Fatal]

NARRATIVE: CASE EVENT DATE: 20141128
